FAERS Safety Report 4765214-X (Version None)
Quarter: 2005Q3

REPORT INFORMATION
  Report Type: 
  Country: None (occurrence: None)
  Receive Date: 20050906
  Receipt Date: 20050824
  Transmission Date: 20060218
  Serious: Yes (Disabling)
  Sender: FDA-Public Use
  Company Number: 2005120135

PATIENT
  Age: 41 Year
  Sex: Female

DRUGS (2)
  1. SERTRALINE HCL [Suspect]
     Indication: DEPRESSION
     Dosage: (50 MG,), ORAL
     Route: 048
     Dates: start: 20050715, end: 20050715
  2. DICLOFENAC SODIUM [Concomitant]

REACTIONS (2)
  - DRUG INEFFECTIVE [None]
  - FACIAL SPASM [None]
